FAERS Safety Report 8889506 (Version 2)
Quarter: 2012Q4

REPORT INFORMATION
  Report Type: 
  Country: US (occurrence: US)
  Receive Date: 20121107
  Receipt Date: 20121220
  Transmission Date: 20130627
  Serious: Yes (Hospitalization)
  Sender: FDA-Public Use
  Company Number: US-BIOGENIDEC-2012BI007354

PATIENT
  Age: 43 Year
  Sex: Female

DRUGS (3)
  1. AVONEX [Suspect]
     Indication: MULTIPLE SCLEROSIS
     Route: 030
     Dates: start: 20041116
  2. AVONEX [Suspect]
     Indication: MULTIPLE SCLEROSIS
     Route: 030
     Dates: start: 20110531
  3. STEROIDS (NOS) [Concomitant]
     Indication: PRODUCT USED FOR UNKNOWN INDICATION

REACTIONS (8)
  - Speech disorder [Recovered/Resolved]
  - Musculoskeletal disorder [Unknown]
  - Mobility decreased [Recovered/Resolved]
  - Frustration [Unknown]
  - Multiple sclerosis relapse [Recovered/Resolved]
  - Confusional state [Recovered/Resolved]
  - Asthenia [Unknown]
  - Fatigue [Unknown]
